FAERS Safety Report 12106295 (Version 2)
Quarter: 2018Q1

REPORT INFORMATION
  Report Type: Spontaneous
  Country: US (occurrence: US)
  Receive Date: 20160223
  Receipt Date: 20180302
  Transmission Date: 20180508
  Serious: Yes (Hospitalization, Disabling)
  Sender: FDA-Public Use
  Company Number: US-ENDO PHARMACEUTICALS INC.-2015-004772

PATIENT
  Age: 71 Year
  Sex: Male
  Weight: 86.17 kg

DRUGS (2)
  1. TESTIM [Suspect]
     Active Substance: TESTOSTERONE
     Indication: ANDROGEN REPLACEMENT THERAPY
     Dosage: UNK UNKNOWN, DAILY
     Route: 062
     Dates: start: 20100513, end: 20111228
  2. AMPYRA [Concomitant]
     Active Substance: DALFAMPRIDINE
     Indication: MULTIPLE SCLEROSIS
     Dosage: UNK UNKNOWN, UNKNOWN
     Route: 065
     Dates: start: 2006

REACTIONS (4)
  - Hyperlipidaemia [Unknown]
  - Acute myocardial infarction [Not Recovered/Not Resolved]
  - Hypertension [Unknown]
  - Coronary artery disease [Unknown]

NARRATIVE: CASE EVENT DATE: 2011
